FAERS Safety Report 24375893 (Version 2)
Quarter: 2024Q4

REPORT INFORMATION
  Report Type: Spontaneous
  Country: DE (occurrence: DE)
  Receive Date: 20240928
  Receipt Date: 20241004
  Transmission Date: 20250114
  Serious: Yes (Life-Threatening, Hospitalization, Other)
  Sender: BAXTER
  Company Number: None

PATIENT
  Age: 43 Year
  Sex: Female
  Weight: 84.8 kg

DRUGS (5)
  1. CYCLOPHOSPHAMIDE [Suspect]
     Active Substance: CYCLOPHOSPHAMIDE
     Indication: Triple negative breast cancer
     Dosage: DOSAGE TEXT: A TOTAL OF 4 TIMES, THERAPY START DATE: MAR2023, STOP DATE: JUN2024
     Route: 042
  2. CARBOPLATIN [Suspect]
     Active Substance: CARBOPLATIN
     Indication: Triple negative breast cancer
     Dosage: DOSAGE TEXT: A TOTAL OF 12 X WEEKLY DOSES, THERAPY START DATE: DEC2023, STOP DATE: MAR2024
     Route: 042
  3. PACLITAXEL [Suspect]
     Active Substance: PACLITAXEL
     Indication: Triple negative breast cancer
     Dosage: DOSAGE TEXT: GIVEN A TOTAL OF 12 TIMES PER WEEK, THERAPY START DATE: DEC2023, STOP DATE: MAR2024
     Route: 042
  4. PEMBROLIZUMAB [Suspect]
     Active Substance: PEMBROLIZUMAB
     Indication: Triple negative breast cancer
     Dosage: DOSAGE TEXT: A TOTAL OF 16 TIMES, THERAPY START DATE: DEC2023, STOP DATE: JUN2024
     Route: 042
  5. EPIRUBICIN [Suspect]
     Active Substance: EPIRUBICIN
     Indication: Triple negative breast cancer
     Dosage: DOSAGE TEXT: A TOTAL OF 4 TIMES, THERAPY START DATE: MAR2023, STOP DATE: JUN2024
     Route: 042

REACTIONS (2)
  - Nephrotic syndrome [Unknown]
  - Renal failure [Unknown]

NARRATIVE: CASE EVENT DATE: 20240714
